FAERS Safety Report 9902583 (Version 2)
Quarter: 2014Q1

REPORT INFORMATION
  Report Type: Spontaneous
  Country: JP (occurrence: JP)
  Receive Date: 20140217
  Receipt Date: 20140220
  Transmission Date: 20141002
  Serious: Yes (Other)
  Sender: FDA-Public Use
  Company Number: JP-PFIZER INC-2014043892

PATIENT
  Age: 54 Year
  Sex: Female

DRUGS (4)
  1. CELECOX [Suspect]
     Indication: ANALGESIC THERAPY
     Dosage: 200 MG, DAILY
     Route: 048
     Dates: start: 20140122, end: 20140203
  2. CELECOX [Suspect]
     Indication: CONTUSION
  3. ADOFEED [Concomitant]
     Dosage: 1 PATCH, DAILY
     Route: 061
     Dates: start: 20140122, end: 20140203
  4. GASLON N [Concomitant]
     Dosage: UNK
     Route: 048
     Dates: start: 20140122, end: 20140203

REACTIONS (2)
  - Intentional drug misuse [Unknown]
  - Erythema multiforme [Recovering/Resolving]
